FAERS Safety Report 23138106 (Version 1)
Quarter: 2023Q4

REPORT INFORMATION
  Report Type: Spontaneous
  Country: JP (occurrence: None)
  Receive Date: 20231102
  Receipt Date: 20231102
  Transmission Date: 20240109
  Serious: Yes (Death, Hospitalization)
  Sender: FDA-Public Use
  Company Number: JP-Unichem Pharmaceuticals (USA) Inc-UCM202310-001318

PATIENT
  Age: 85 Year
  Sex: Female

DRUGS (2)
  1. METRONIDAZOLE [Suspect]
     Active Substance: METRONIDAZOLE
     Indication: Liver abscess
     Dosage: TOTAL DOSE OF METRONIDAZOLE 73.5MG
     Route: 048
  2. MEROPENEM [Concomitant]
     Active Substance: MEROPENEM
     Indication: Liver abscess
     Dosage: UNKNOWN

REACTIONS (4)
  - Pneumonia aspiration [Fatal]
  - Altered state of consciousness [Fatal]
  - Toxic encephalopathy [Fatal]
  - Seizure [Fatal]
